FAERS Safety Report 20057844 (Version 3)
Quarter: 2023Q1

REPORT INFORMATION
  Report Type: Report from Study
  Country: US (occurrence: US)
  Receive Date: 20211111
  Receipt Date: 20230110
  Transmission Date: 20230417
  Serious: Yes (Other)
  Sender: FDA-Public Use
  Company Number: US-SHIRE-US202033010

PATIENT
  Age: 62 Year
  Sex: Female

DRUGS (3)
  1. HUMAN IMMUNOGLOBULIN G [Suspect]
     Active Substance: HUMAN IMMUNOGLOBULIN G
     Indication: Primary immunodeficiency syndrome
     Dosage: 40 GRAM
     Route: 042
  2. HUMAN IMMUNOGLOBULIN G [Suspect]
     Active Substance: HUMAN IMMUNOGLOBULIN G
     Indication: Immunodeficiency common variable
  3. RITUXIMAB [Suspect]
     Active Substance: RITUXIMAB
     Indication: Product used for unknown indication
     Dosage: UNK
     Route: 065

REACTIONS (23)
  - Brain injury [Unknown]
  - Intestinal obstruction [Unknown]
  - Inflammatory bowel disease [Unknown]
  - Nasopharyngitis [Unknown]
  - Inflammation [Unknown]
  - Hepatic enzyme increased [Unknown]
  - Weight decreased [Unknown]
  - Road traffic accident [Recovered/Resolved]
  - Arthralgia [Unknown]
  - Joint swelling [Unknown]
  - Concussion [Not Recovered/Not Resolved]
  - Ligament rupture [Unknown]
  - Strabismus [Unknown]
  - Inflammatory marker increased [Unknown]
  - Gait disturbance [Unknown]
  - Pulmonary function test decreased [Unknown]
  - Food allergy [Unknown]
  - Dehydration [Unknown]
  - Food poisoning [Unknown]
  - Dairy intolerance [Unknown]
  - Walking aid user [Unknown]
  - Inappropriate schedule of product administration [Unknown]
  - Head injury [Unknown]

NARRATIVE: CASE EVENT DATE: 20201007
